FAERS Safety Report 5451658-X (Version None)
Quarter: 2007Q3

REPORT INFORMATION
  Report Type: 
  Country: None (occurrence: None)
  Receive Date: 20070913
  Receipt Date: 20070901
  Transmission Date: 20080115
  Serious: Yes (Other)
  Sender: FDA-Public Use
  Company Number: US-PFIZER INC-2007073615

PATIENT
  Sex: Female
  Weight: 99.8 kg

DRUGS (3)
  1. CHANTIX [Suspect]
     Indication: SMOKING CESSATION THERAPY
     Route: 048
  2. METHOTREXATE [Concomitant]
     Route: 048
  3. REMICADE [Concomitant]
     Route: 042

REACTIONS (4)
  - ANXIETY [None]
  - CHEST DISCOMFORT [None]
  - DYSPNOEA [None]
  - SOMNOLENCE [None]
